FAERS Safety Report 14790441 (Version 2)
Quarter: 2018Q2

REPORT INFORMATION
  Report Type: Spontaneous
  Country: US (occurrence: US)
  Receive Date: 20180423
  Receipt Date: 20180604
  Transmission Date: 20180711
  Serious: Yes (Death, Other)
  Sender: FDA-Public Use
  Company Number: US-AMGEN-USASP2018053500

PATIENT
  Age: 71 Year
  Sex: Male

DRUGS (1)
  1. REPATHA [Suspect]
     Active Substance: EVOLOCUMAB
     Indication: BLOOD CHOLESTEROL INCREASED
     Dosage: 140 MG, Q2WK
     Route: 065
     Dates: start: 20180212

REACTIONS (6)
  - Hepatic cancer metastatic [Unknown]
  - Fall [Unknown]
  - Death [Fatal]
  - Rib fracture [Unknown]
  - Bone disorder [Unknown]
  - Hypercalcaemia of malignancy [Unknown]

NARRATIVE: CASE EVENT DATE: 201802
